FAERS Safety Report 11225056 (Version 32)
Quarter: 2017Q3

REPORT INFORMATION
  Report Type: Report from Study
  Country: CA (occurrence: CA)
  Receive Date: 20150629
  Receipt Date: 20170907
  Transmission Date: 20171127
  Serious: Yes (Hospitalization, Other)
  Sender: FDA-Public Use
  Company Number: PHHY2012CA006959

PATIENT
  Age: 66 Year
  Sex: Female

DRUGS (14)
  1. SANDOSTATIN LAR DEPOT [Suspect]
     Active Substance: OCTREOTIDE ACETATE
     Dosage: 60 MG, EVERY 2 WEEKS
     Route: 030
     Dates: start: 20131003, end: 20140402
  2. HYDRALAZINE [Concomitant]
     Active Substance: HYDRALAZINE HYDROCHLORIDE
     Dosage: 25 MG, TID
     Route: 065
     Dates: start: 201704
  3. SANDOSTATIN LAR DEPOT [Suspect]
     Active Substance: OCTREOTIDE ACETATE
     Dosage: 80 MG, EVERY 2 WEEKS
     Route: 030
     Dates: start: 20140416, end: 20150930
  4. ATIVAN [Concomitant]
     Active Substance: LORAZEPAM
     Indication: PRODUCT USED FOR UNKNOWN INDICATION
     Dosage: 1 MG, QHS
     Route: 065
  5. SANDOSTATIN LAR DEPOT [Suspect]
     Active Substance: OCTREOTIDE ACETATE
     Dosage: 40 MG, EVERY 2 WEEKS
     Route: 030
     Dates: start: 20130502, end: 20130919
  6. SANDOSTATIN LAR DEPOT [Suspect]
     Active Substance: OCTREOTIDE ACETATE
     Dosage: 80 MG, EVERY 2 WEEKS
     Route: 030
     Dates: start: 20151223
  7. HTZ [Concomitant]
     Indication: PRODUCT USED FOR UNKNOWN INDICATION
     Dosage: 25 MG, UNK
     Route: 065
  8. SANDOSTATIN LAR DEPOT [Suspect]
     Active Substance: OCTREOTIDE ACETATE
     Indication: NEUROENDOCRINE TUMOUR
     Dosage: 30 MG, QMO (ONCE A MONTH)
     Route: 030
     Dates: start: 20060615, end: 20091206
  9. SANDOSTATIN LAR DEPOT [Suspect]
     Active Substance: OCTREOTIDE ACETATE
     Dosage: 60 MG, QMO (EVERY 4 WEEKS)
     Route: 030
     Dates: start: 20130314, end: 20130411
  10. HYDRALAZINE [Concomitant]
     Active Substance: HYDRALAZINE HYDROCHLORIDE
     Indication: PRODUCT USED FOR UNKNOWN INDICATION
     Dosage: 10 MG, TID
     Route: 065
     Dates: start: 201704
  11. SANDOSTATIN LAR DEPOT [Suspect]
     Active Substance: OCTREOTIDE ACETATE
     Dosage: 60 MG, EVERY 2 WEEKS
     Route: 030
     Dates: start: 20151013, end: 20151207
  12. TELMISARTAN. [Concomitant]
     Active Substance: TELMISARTAN
     Indication: PRODUCT USED FOR UNKNOWN INDICATION
     Route: 065
  13. SANDOSTATIN LAR DEPOT [Suspect]
     Active Substance: OCTREOTIDE ACETATE
     Dosage: 30 MG, EVERY 3 WEEKS
     Route: 030
     Dates: start: 20091228, end: 20130223
  14. PMS-HYDROCHLOROTHIAZID [Concomitant]
     Indication: HYPERTENSION
     Dosage: 25 MG, QD
     Route: 048

REACTIONS (60)
  - Cardiac failure [Unknown]
  - Neoplasm progression [Unknown]
  - Insomnia [Unknown]
  - Cough [Recovering/Resolving]
  - Fear [Unknown]
  - Hot flush [Unknown]
  - Intestinal polyp [Unknown]
  - Nasopharyngitis [Unknown]
  - Bronchitis [Not Recovered/Not Resolved]
  - Metastases to liver [Unknown]
  - Panic disorder [Unknown]
  - Underdose [Unknown]
  - Body temperature decreased [Unknown]
  - Heart rate increased [Unknown]
  - Haemorrhage [Unknown]
  - Anxiety [Unknown]
  - Migraine [Unknown]
  - Injection site haemorrhage [Unknown]
  - Injection site swelling [Unknown]
  - Needle issue [Unknown]
  - Product quality issue [Unknown]
  - Fractured coccyx [Unknown]
  - Gait disturbance [Unknown]
  - Aggression [Unknown]
  - Oropharyngeal pain [Unknown]
  - Ear infection [Unknown]
  - Anaemia [Unknown]
  - Musculoskeletal pain [Recovering/Resolving]
  - Diarrhoea [Recovered/Resolved]
  - Fatigue [Unknown]
  - Headache [Recovered/Resolved]
  - Inappropriate schedule of drug administration [Unknown]
  - Hypertension [Unknown]
  - Oedema peripheral [Unknown]
  - Crying [Unknown]
  - Pain in extremity [Recovering/Resolving]
  - Dyspnoea [Unknown]
  - Cataract [Unknown]
  - Flushing [Unknown]
  - Hyperhidrosis [Unknown]
  - Pain [Recovering/Resolving]
  - Palpitations [Unknown]
  - Proteinuria [Unknown]
  - Blood pressure diastolic decreased [Unknown]
  - Increased upper airway secretion [Unknown]
  - Coccydynia [Unknown]
  - Nervousness [Unknown]
  - Injection site pain [Not Recovered/Not Resolved]
  - Spinal fracture [Unknown]
  - Fall [Unknown]
  - Dysphonia [Unknown]
  - Contusion [Unknown]
  - Asthenia [Unknown]
  - Injection site erythema [Unknown]
  - Malignant neoplasm progression [Unknown]
  - Muscle tightness [Unknown]
  - Erythema [Unknown]
  - Blood pressure diastolic increased [Unknown]
  - Blood pressure systolic increased [Unknown]
  - Injection site warmth [Unknown]

NARRATIVE: CASE EVENT DATE: 20060615
